FAERS Safety Report 20782220 (Version 3)
Quarter: 2023Q2

REPORT INFORMATION
  Report Type: Report from Study
  Country: US (occurrence: US)
  Receive Date: 20220504
  Receipt Date: 20230428
  Transmission Date: 20230722
  Serious: Yes (Death, Other)
  Sender: FDA-Public Use
  Company Number: US-ASTELLAS-2022US016267

PATIENT
  Age: 89 Year
  Sex: Male

DRUGS (5)
  1. ENZALUTAMIDE [Suspect]
     Active Substance: ENZALUTAMIDE
     Indication: Product used for unknown indication
     Route: 065
  2. ENZALUTAMIDE [Suspect]
     Active Substance: ENZALUTAMIDE
     Route: 065
  3. ENZALUTAMIDE [Suspect]
     Active Substance: ENZALUTAMIDE
     Route: 065
     Dates: start: 202012, end: 20220415
  4. ENZALUTAMIDE [Suspect]
     Active Substance: ENZALUTAMIDE
     Route: 065
     Dates: start: 20220505
  5. LUPRON [Suspect]
     Active Substance: LEUPROLIDE ACETATE
     Indication: Bone cancer
     Dosage: UNK UNK, EVERY SIX MONTHS
     Route: 065

REACTIONS (8)
  - Death [Fatal]
  - Malignant neoplasm progression [Unknown]
  - Hallucination [Unknown]
  - Eye disorder [Recovering/Resolving]
  - Nightmare [Unknown]
  - Negative thoughts [Unknown]
  - Prostatic specific antigen increased [Unknown]
  - Product availability issue [Unknown]

NARRATIVE: CASE EVENT DATE: 20220415
